FAERS Safety Report 15459278 (Version 1)
Quarter: 2018Q4

REPORT INFORMATION
  Report Type: Spontaneous
  Country: IT (occurrence: IT)
  Receive Date: 20181003
  Receipt Date: 20181003
  Transmission Date: 20190204
  Serious: Yes (Hospitalization)
  Sender: FDA-Public Use
  Company Number: IT-TEVA-2018-IT-958725

PATIENT
  Age: 28 Year
  Sex: Female

DRUGS (1)
  1. LUTIZ [DROSPIRENONE\ETHINYL ESTRADIOL] [Suspect]
     Active Substance: DROSPIRENONE\ETHINYL ESTRADIOL
     Indication: CONTRACEPTION
     Route: 065
     Dates: start: 201603, end: 20180901

REACTIONS (1)
  - Pulmonary embolism [Not Recovered/Not Resolved]
